FAERS Safety Report 5663048-5 (Version None)
Quarter: 2008Q1

REPORT INFORMATION
  Report Type: 
  Country: None (occurrence: None)
  Receive Date: 20080313
  Receipt Date: 20080305
  Transmission Date: 20080703
  Serious: Yes (Disabling, Other)
  Sender: FDA-Public Use
  Company Number: JP-PFIZER INC-2008014258

PATIENT
  Sex: Female
  Weight: 48 kg

DRUGS (2)
  1. DETRUSITOL SR [Suspect]
     Indication: NOCTURIA
     Route: 048
  2. DETRUSITOL SR [Suspect]
     Indication: HYPERTONIC BLADDER

REACTIONS (1)
  - GLAUCOMA [None]
